FAERS Safety Report 20340469 (Version 2)
Quarter: 2022Q1

REPORT INFORMATION
  Report Type: Report from Study
  Country: NL (occurrence: NL)
  Receive Date: 20220117
  Receipt Date: 20220119
  Transmission Date: 20220423
  Serious: Yes (Death)
  Sender: FDA-Public Use
  Company Number: NL-ABBVIE-22K-114-4237339-00

PATIENT
  Sex: Male

DRUGS (3)
  1. CARBIDOPA\LEVODOPA [Suspect]
     Active Substance: CARBIDOPA\LEVODOPA
     Indication: Parkinson^s disease
     Dosage: 20 MG/ML 5 MG/ML
     Route: 050
     Dates: start: 20151027
  2. CARBIDOPA\LEVODOPA [Suspect]
     Active Substance: CARBIDOPA\LEVODOPA
     Dosage: MD: 5.0 ML, CD: 5.3  ML/H, ED: 2.0 ML
     Route: 050
  3. CARBIDOPA\LEVODOPA [Suspect]
     Active Substance: CARBIDOPA\LEVODOPA
     Dosage: MD: 5.4 ML, CD: 5.3  ML/H, ED: 3.0 ML, CND: 4.0 ML/H
     Route: 050

REACTIONS (7)
  - Hypophagia [Fatal]
  - Palliative care [Fatal]
  - Dehydration [Fatal]
  - Cachexia [Fatal]
  - Dysphagia [Fatal]
  - Parkinson^s disease [Fatal]
  - Pneumonia aspiration [Fatal]
